FAERS Safety Report 7035298-7 (Version None)
Quarter: 2010Q4

REPORT INFORMATION
  Report Type: 
  Country: None (occurrence: None)
  Receive Date: 20101008
  Receipt Date: 20101004
  Transmission Date: 20110411
  Serious: Yes (Hospitalization)
  Sender: FDA-Public Use
  Company Number: B0676803A

PATIENT
  Sex: Female
  Weight: 70 kg

DRUGS (12)
  1. ARIXTRA [Suspect]
     Indication: DEEP VEIN THROMBOSIS
     Dosage: 7.5MG PER DAY
     Route: 058
     Dates: start: 20100122, end: 20100125
  2. PLAVIX [Concomitant]
     Dosage: 75MG PER DAY
     Route: 065
     Dates: end: 20100125
  3. KARDEGIC [Concomitant]
     Dosage: 75MG PER DAY
     Route: 065
     Dates: end: 20100125
  4. SECTRAL [Concomitant]
     Dosage: 400MG PER DAY
     Route: 065
  5. TAHOR [Concomitant]
     Dosage: 80MG PER DAY
     Route: 065
  6. TRIATEC [Concomitant]
     Dosage: 7.5MG PER DAY
     Route: 065
  7. OMACOR [Concomitant]
     Dosage: 1UNIT PER DAY
     Route: 065
  8. INIPOMP [Concomitant]
     Dosage: 40MG PER DAY
     Route: 065
  9. CORTANCYL [Concomitant]
     Dosage: 15MG PER DAY
     Route: 065
  10. CACIT D3 [Concomitant]
     Dosage: 1UNIT PER DAY
     Route: 065
  11. TARDYFERON [Concomitant]
     Dosage: 2UNIT PER DAY
     Route: 065
  12. SPECIAFOLDINE [Concomitant]
     Route: 065

REACTIONS (6)
  - ANAEMIA [None]
  - GASTROINTESTINAL HAEMORRHAGE [None]
  - INCORRECT DRUG ADMINISTRATION DURATION [None]
  - MELAENA [None]
  - PALLOR [None]
  - RECTAL HAEMORRHAGE [None]
